FAERS Safety Report 11072225 (Version 1)
Quarter: 2015Q2

REPORT INFORMATION
  Report Type: Spontaneous
  Country: US (occurrence: None)
  Receive Date: 20150427
  Receipt Date: 20150427
  Transmission Date: 20150821
  Serious: Yes (Other)
  Sender: FDA-Public Use
  Company Number: None

PATIENT
  Age: 41 Year
  Sex: Female
  Weight: 98.88 kg

DRUGS (1)
  1. CONTRAVE [Suspect]
     Active Substance: BUPROPION HYDROCHLORIDE\NALTREXONE HYDROCHLORIDE
     Indication: WEIGHT CONTROL
     Dates: start: 20150401, end: 20150412

REACTIONS (6)
  - Dysphagia [None]
  - Sensation of foreign body [None]
  - Dyspnoea [None]
  - Musculoskeletal discomfort [None]
  - Dysphonia [None]
  - Throat tightness [None]

NARRATIVE: CASE EVENT DATE: 20150401
